FAERS Safety Report 24899568 (Version 2)
Quarter: 2025Q1

REPORT INFORMATION
  Report Type: Spontaneous
  Country: CA (occurrence: CA)
  Receive Date: 20250129
  Receipt Date: 20250206
  Transmission Date: 20250409
  Serious: No
  Sender: PFIZER
  Company Number: CA-PFIZER INC-202300051845

PATIENT
  Age: 53 Year
  Sex: Female

DRUGS (20)
  1. RUXIENCE [Suspect]
     Active Substance: RITUXIMAB-PVVR
     Indication: Rheumatoid arthritis
     Route: 042
     Dates: start: 20230307
  2. RUXIENCE [Suspect]
     Active Substance: RITUXIMAB-PVVR
     Indication: Interstitial lung disease
     Route: 042
     Dates: start: 20230320, end: 2023
  3. RUXIENCE [Suspect]
     Active Substance: RITUXIMAB-PVVR
     Indication: Antisynthetase syndrome
     Route: 042
     Dates: start: 20231019
  4. RUXIENCE [Suspect]
     Active Substance: RITUXIMAB-PVVR
     Indication: Myositis
     Route: 042
     Dates: start: 20231103
  5. RUXIENCE [Suspect]
     Active Substance: RITUXIMAB-PVVR
     Indication: Arthritis
     Route: 042
     Dates: start: 20240607
  6. RUXIENCE [Suspect]
     Active Substance: RITUXIMAB-PVVR
     Route: 042
     Dates: start: 20240621
  7. RUXIENCE [Suspect]
     Active Substance: RITUXIMAB-PVVR
     Route: 042
     Dates: start: 20250122
  8. AMITRIPTYLINE [Concomitant]
     Active Substance: AMITRIPTYLINE
  9. ALENDRONATE [Concomitant]
     Active Substance: ALENDRONATE SODIUM
  10. CALCIUM [Concomitant]
     Active Substance: CALCIUM
  11. CITALOPRAM [Concomitant]
     Active Substance: CITALOPRAM
  12. FOLIC ACID [Concomitant]
     Active Substance: FOLIC ACID
  13. MEDROL [Concomitant]
     Active Substance: METHYLPREDNISOLONE
     Dosage: 24 MG, DAILY
  14. METHOTREXATE [Concomitant]
     Active Substance: METHOTREXATE
     Dosage: 10 MG, WEEKLY
     Route: 048
  15. METHOTREXATE [Concomitant]
     Active Substance: METHOTREXATE
     Dosage: 15 MG, WEEKLY [2.5 MG TABS (6 TABLETS ON SUNDAY ONCE WEEKLY)]
     Route: 048
     Dates: start: 2024
  16. PANTOPRAZOLE [Concomitant]
     Active Substance: PANTOPRAZOLE
  17. PROBIOTICS NOS [Concomitant]
     Active Substance: PROBIOTICS NOS
  18. SULFATRIM [Concomitant]
     Active Substance: SULFAMETHOXAZOLE\TRIMETHOPRIM
  19. VITAMIN B3 [Concomitant]
     Active Substance: NIACIN
  20. CHOLECALCIFEROL [Concomitant]
     Active Substance: CHOLECALCIFEROL

REACTIONS (5)
  - Vertigo positional [Not Recovered/Not Resolved]
  - Therapeutic response shortened [Unknown]
  - Condition aggravated [Unknown]
  - Nasopharyngitis [Unknown]
  - Inappropriate schedule of product administration [Unknown]

NARRATIVE: CASE EVENT DATE: 20230323
